FAERS Safety Report 7324515-1 (Version None)
Quarter: 2011Q1

REPORT INFORMATION
  Report Type: 
  Country: None (occurrence: None)
  Receive Date: 20110301
  Receipt Date: 20110214
  Transmission Date: 20110831
  Serious: Yes (Hospitalization)
  Sender: FDA-Public Use
  Company Number: JP-BAYER-201011793BYL

PATIENT
  Age: 52 Year
  Sex: Male

DRUGS (12)
  1. SORAFENIB (RAF KINASE INHIBITOR) [Suspect]
     Dosage: 800 MG
     Dates: start: 20100302, end: 20100414
  2. METHYCOBAL [Concomitant]
     Dosage: 500 ?G (DAILY DOSE), , ORAL
     Route: 048
     Dates: start: 20100205
  3. OXYCONTIN [Concomitant]
     Dosage: 10 MG (DAILY DOSE), , ORAL
     Route: 048
     Dates: start: 20090930
  4. MAGMITT [Concomitant]
     Dosage: 250 MG (DAILY DOSE), , ORAL
     Route: 048
     Dates: start: 20100205
  5. LOXONIN [Concomitant]
     Dosage: 1 DF (DAILY DOSE), , ORAL
     Route: 048
     Dates: start: 20090930
  6. OXINORM [Concomitant]
     Dosage: 2.5 MG (DAILY DOSE), , ORAL
     Route: 048
     Dates: start: 20090930
  7. ZOMETA [Concomitant]
     Indication: METASTASES TO BONE
     Dosage: DAILY DOSE 4 MG
     Route: 048
     Dates: start: 20100310, end: 20100702
  8. MUCOSTA [Concomitant]
     Indication: PROPHYLAXIS AGAINST GASTROINTESTINAL ULCER
     Dosage: 100 MG (DAILY DOSE), , ORAL
     Route: 048
     Dates: start: 20090930
  9. SUTENT [Suspect]
     Dosage: DAILY DOSE 50 MG
     Route: 048
     Dates: start: 20100415, end: 20100427
  10. SORAFENIB (RAF KINASE INHIBITOR) [Suspect]
     Indication: RENAL CELL CARCINOMA
     Dosage: 800MG
     Dates: start: 20091217, end: 20100202
  11. PANTOSIN [Concomitant]
     Dosage: 3 G (DAILY DOSE), , ORAL
     Route: 048
     Dates: start: 20100205
  12. DUROTEP [Concomitant]
     Dosage: 2.1 MG (DAILY DOSE), , TRANSDERMAL
     Route: 062
     Dates: start: 20100325

REACTIONS (6)
  - PALMAR-PLANTAR ERYTHRODYSAESTHESIA SYNDROME [None]
  - HAEMOGLOBIN DECREASED [None]
  - LYMPHOCYTE COUNT DECREASED [None]
  - BONE MARROW FAILURE [None]
  - PLATELET COUNT DECREASED [None]
  - DEPRESSION [None]
